FAERS Safety Report 5003406-5 (Version None)
Quarter: 2006Q2

REPORT INFORMATION
  Report Type: 
  Country: None (occurrence: None)
  Receive Date: 20060511
  Receipt Date: 20060427
  Transmission Date: 20061013
  Serious: Yes (Death, Hospitalization)
  Sender: FDA-Public Use
  Company Number: 2006BI005973

PATIENT
  Age: 66 Year
  Sex: Male
  Weight: 112 kg

DRUGS (3)
  1. ZEVALIN [Suspect]
     Indication: NON-HODGKIN'S LYMPHOMA STAGE IV
     Dosage: 1X; IV
     Route: 042
     Dates: start: 20060209, end: 20060209
  2. RITUXIMAB [Concomitant]
  3. ANTIBIOTICS [Concomitant]

REACTIONS (3)
  - GENERAL PHYSICAL HEALTH DETERIORATION [None]
  - NEUTROPENIC SEPSIS [None]
  - STEVENS-JOHNSON SYNDROME [None]
